APPROVED DRUG PRODUCT: HYDROCHLOROTHIAZIDE
Active Ingredient: HYDROCHLOROTHIAZIDE
Strength: 12.5MG
Dosage Form/Route: TABLET;ORAL
Application: A040707 | Product #001 | TE Code: AB
Applicant: ACTAVIS ELIZABETH LLC
Approved: Feb 27, 2007 | RLD: No | RS: No | Type: RX